FAERS Safety Report 5249125-1 (Version None)
Quarter: 2007Q1

REPORT INFORMATION
  Report Type: 
  Country: None (occurrence: None)
  Receive Date: 20070223
  Receipt Date: 20070208
  Transmission Date: 20070707
  Serious: Yes (Other)
  Sender: FDA-Public Use
  Company Number: 2007RR-05707

PATIENT
  Sex: Female

DRUGS (3)
  1. DIAZEPAM [Suspect]
  2. PARACETAMOL (ACETAMINOPHEN/PARACETAMOL) UNKNOWN [Suspect]
  3. SEROXAT (PAROXETINE HYDROCHLORIDE, PAROXETINE HYDROCHLORIDE HEMIHYDRAT [Suspect]
     Indication: DEPRESSED MOOD
     Dosage: 20 MG, QD; 30 MG
     Dates: start: 20011001

REACTIONS (10)
  - AGGRESSION [None]
  - DRUG WITHDRAWAL SYNDROME [None]
  - NIGHTMARE [None]
  - OVERDOSE [None]
  - PHYSICAL ASSAULT [None]
  - PSYCHIATRIC SYMPTOM [None]
  - SELF-INJURIOUS IDEATION [None]
  - SUICIDE ATTEMPT [None]
  - TINNITUS [None]
  - TREATMENT NONCOMPLIANCE [None]
